FAERS Safety Report 19563564 (Version 2)
Quarter: 2022Q2

REPORT INFORMATION
  Report Type: Spontaneous
  Country: US (occurrence: US)
  Receive Date: 20210716
  Receipt Date: 20220505
  Transmission Date: 20220720
  Serious: No
  Sender: FDA-Public Use
  Company Number: US-PFIZER INC-2021353579

PATIENT

DRUGS (1)
  1. BENEFIX [Suspect]
     Active Substance: COAGULATION FACTOR IX RECOMBINANT HUMAN\ISOPROPYL ALCOHOL
     Indication: Madarosis
     Dosage: 3000 IU, SINGLE
     Dates: start: 20210325

REACTIONS (3)
  - Product physical issue [Unknown]
  - Product quality issue [Unknown]
  - Wrong technique in product usage process [Unknown]
